FAERS Safety Report 6361232-9 (Version None)
Quarter: 2009Q3

REPORT INFORMATION
  Report Type: 
  Country: None (occurrence: None)
  Receive Date: 20090918
  Receipt Date: 20090909
  Transmission Date: 20100115
  Serious: Yes (Hospitalization)
  Sender: FDA-Public Use
  Company Number: FR-ABBOTT-09P-056-0595935-00

PATIENT
  Sex: Female

DRUGS (14)
  1. NORVIR [Suspect]
     Indication: HIV INFECTION
     Route: 048
     Dates: start: 19990101
  2. ABACAVIR SULFATE/LAMIVUDINE [Suspect]
     Indication: HIV INFECTION
     Dosage: 600 MG / 300 MP
     Dates: start: 19990101
  3. ATAZANAVIR [Suspect]
     Indication: HIV INFECTION
     Route: 048
     Dates: start: 19990101
  4. PRAVASTATIN [Suspect]
     Indication: HYPERCHOLESTEROLAEMIA
     Route: 048
  5. LEVOTHYROXINE SODIUM [Concomitant]
     Indication: HYPOTHYROIDISM
     Route: 048
  6. CLOPIDOGREL [Concomitant]
     Indication: TAKAYASU'S ARTERITIS
     Route: 048
     Dates: start: 20080701
  7. AMITRIPTYLINE [Concomitant]
     Indication: NEURALGIA
     Route: 048
  8. DIAZEPAM [Concomitant]
     Indication: DRUG USE FOR UNKNOWN INDICATION
     Route: 048
  9. BUPRENORPHINE HCL [Concomitant]
     Indication: DRUG DEPENDENCE
     Route: 060
  10. PREGABALINE [Concomitant]
     Indication: PYELONEPHRITIS
     Route: 048
  11. MIRTAZAPINE [Concomitant]
     Indication: DRUG USE FOR UNKNOWN INDICATION
     Route: 048
  12. ZOLPIDEM [Concomitant]
     Indication: INSOMNIA
     Route: 048
  13. ACETAMINOPHEN WITH PROPOXYPHENE HCL TAB [Concomitant]
     Indication: PAIN
     Route: 048
  14. GINKGO BILOBA, TROXERUTINE [Concomitant]
     Indication: TAKAYASU'S ARTERITIS
     Route: 048

REACTIONS (13)
  - AORTIC STENOSIS [None]
  - ARTERIAL STENOSIS [None]
  - CONDITION AGGRAVATED [None]
  - HEPATIC CIRRHOSIS [None]
  - HEPATITIS C [None]
  - HIV INFECTION [None]
  - INTERMITTENT CLAUDICATION [None]
  - NEURALGIA [None]
  - PAIN [None]
  - PYELONEPHRITIS [None]
  - SENSORIMOTOR DISORDER [None]
  - TAKAYASU'S ARTERITIS [None]
  - VASCULITIS [None]
